FAERS Safety Report 5393072-1 (Version None)
Quarter: 2007Q3

REPORT INFORMATION
  Report Type: 
  Country: None (occurrence: None)
  Receive Date: 20070719
  Receipt Date: 20070706
  Transmission Date: 20080115
  Serious: Yes (Hospitalization)
  Sender: FDA-Public Use
  Company Number: 100#08#2006-01709

PATIENT
  Age: 42 Year
  Sex: Female

DRUGS (4)
  1. CITALOPRAM HYDROBROMIDE [Suspect]
     Indication: BIPOLAR DISORDER
     Dosage: 40 MG,
  2. QUETIAPINE (QUETIAPINE) (QUETIAPINE) [Suspect]
     Indication: BIPOLAR DISORDER
     Dosage: 800 MG/DAY; EXTRA 200 MG IN THE MORNING
  3. ALPRAZOLAM [Concomitant]
  4. RISPERIDONE [Concomitant]

REACTIONS (9)
  - AGITATION [None]
  - DEHYDRATION [None]
  - DELIRIUM [None]
  - DISORIENTATION [None]
  - HYPERREFLEXIA [None]
  - IMPAIRED DRIVING ABILITY [None]
  - MUSCLE RIGIDITY [None]
  - SEROTONIN SYNDROME [None]
  - URINARY INCONTINENCE [None]
